FAERS Safety Report 20716719 (Version 3)
Quarter: 2022Q2

REPORT INFORMATION
  Report Type: Spontaneous
  Country: JP (occurrence: JP)
  Receive Date: 20220416
  Receipt Date: 20220617
  Transmission Date: 20220720
  Serious: Yes (Other)
  Sender: FDA-Public Use
  Company Number: JP-AMGEN-JPNSP2022010375

PATIENT
  Sex: Female

DRUGS (6)
  1. BLINCYTO [Suspect]
     Active Substance: BLINATUMOMAB
     Indication: Acute lymphocytic leukaemia
     Dosage: UNK
     Route: 041
     Dates: start: 20220117, end: 20220118
  2. BLINCYTO [Suspect]
     Active Substance: BLINATUMOMAB
     Dosage: UNK
     Route: 041
     Dates: start: 20220125
  3. BLINCYTO [Suspect]
     Active Substance: BLINATUMOMAB
     Dosage: UNK
     Route: 041
     Dates: start: 20220330
  4. BLINCYTO [Suspect]
     Active Substance: BLINATUMOMAB
     Dosage: 6.5 MICROGRAM, QD
     Route: 041
  5. BLINCYTO [Suspect]
     Active Substance: BLINATUMOMAB
     Dosage: 17.5 MICROGRAM, QD
     Route: 041
  6. ONCOVIN [Concomitant]
     Active Substance: VINCRISTINE SULFATE
     Dosage: UNK
     Route: 065

REACTIONS (9)
  - Deafness [Recovered/Resolved]
  - Dysgraphia [Recovered/Resolved]
  - Pyrexia [Recovered/Resolved]
  - Fall [Unknown]
  - Face injury [Unknown]
  - Off label use [Unknown]
  - Dizziness [Recovering/Resolving]
  - Hypoaesthesia [Recovering/Resolving]
  - Arthralgia [Not Recovered/Not Resolved]

NARRATIVE: CASE EVENT DATE: 20220101
